FAERS Safety Report 8791420 (Version 1)
Quarter: 2012Q4

REPORT INFORMATION
  Report Type: Spontaneous
  Country: US (occurrence: None)
  Receive Date: 20120914
  Receipt Date: 20120914
  Transmission Date: 20130627
  Serious: Yes (Life-Threatening, Hospitalization)
  Sender: FDA-Public Use
  Company Number: None

PATIENT
  Age: 78 Year
  Sex: Male
  Weight: 78 kg

DRUGS (8)
  1. LEVETIRACETAM [Suspect]
     Indication: CONVULSION PROPHYLAXIS
     Dosage: 1000mg bid po
     Route: 048
     Dates: start: 20120808, end: 20120828
  2. DEXAMETHASONE [Concomitant]
  3. FUROSEMIDE [Concomitant]
  4. ATORVASTATIN [Concomitant]
  5. MIRALAX [Concomitant]
  6. PANTOPRAZOLE [Concomitant]
  7. LEVOTHYROXINE [Concomitant]
  8. DILTIAZEM [Concomitant]

REACTIONS (1)
  - Heparin-induced thrombocytopenia [None]
